FAERS Safety Report 6340568-1 (Version None)
Quarter: 2009Q3

REPORT INFORMATION
  Report Type: 
  Country: None (occurrence: None)
  Receive Date: 20090904
  Receipt Date: 20090827
  Transmission Date: 20100115
  Serious: Yes (Other)
  Sender: FDA-Public Use
  Company Number: GB-BAYER-200910164BNE

PATIENT
  Age: 58 Year
  Sex: Male

DRUGS (4)
  1. NEXAVAR [Suspect]
     Indication: HEPATIC NEOPLASM MALIGNANT
     Dosage: UNIT DOSE: 400 MG
  2. NEXAVAR [Suspect]
     Dosage: UNIT DOSE: 400 MG
  3. NEXAVAR [Suspect]
  4. NEXAVAR [Suspect]
     Dosage: UNIT DOSE: 200 MG

REACTIONS (4)
  - DECREASED INSULIN REQUIREMENT [None]
  - DIARRHOEA [None]
  - PALMAR-PLANTAR ERYTHRODYSAESTHESIA SYNDROME [None]
  - SKIN ULCER [None]
